FAERS Safety Report 10430072 (Version 2)
Quarter: 2014Q3

REPORT INFORMATION
  Report Type: Spontaneous
  Country: US (occurrence: None)
  Receive Date: 20140902
  Receipt Date: 20140922
  Transmission Date: 20150326
  Serious: Yes (Other)
  Sender: FDA-Public Use
  Company Number: US-RRD-14-00075

PATIENT
  Age: 65 Year
  Sex: Male
  Weight: 128.3 kg

DRUGS (13)
  1. MS CONTIN (MORPHINE SULFATE) [Concomitant]
  2. VITAMIN D (ERGOCALCIFEROL) [Concomitant]
     Active Substance: ERGOCALCIFEROL
  3. NEURONTIN [Concomitant]
     Active Substance: GABAPENTIN
  4. KYTRIL (GRANISETRON HYDROCHLORIDE) [Concomitant]
  5. WARFARIN [Concomitant]
     Active Substance: WARFARIN
  6. RITALIN (METHYLPHENIDATE HYDROCHLORIDE) [Concomitant]
     Active Substance: METHYLPHENIDATE HYDROCHLORIDE
  7. PANHEMATIN [Suspect]
     Active Substance: HEMIN
     Indication: PORPHYRIA
     Dosage: FROM A SINGLE INFUSION/MONTH TO 3-4/WEEK
     Route: 042
     Dates: start: 2006
  8. PRILOSEC (OMEPRAZOLE) [Concomitant]
     Active Substance: OMEPRAZOLE MAGNESIUM
  9. POTASSIUM CHLORIDE. [Concomitant]
     Active Substance: POTASSIUM CHLORIDE
  10. WELLBUTRIN [Concomitant]
     Active Substance: BUPROPION HYDROCHLORIDE
  11. LASIX [Concomitant]
     Active Substance: FUROSEMIDE
  12. DECADRON [Concomitant]
     Active Substance: DEXAMETHASONE
  13. LOPRESSOR [Concomitant]
     Active Substance: METOPROLOL TARTRATE

REACTIONS (14)
  - Feeling abnormal [None]
  - Device related infection [None]
  - Weight fluctuation [None]
  - Device occlusion [None]
  - Postoperative wound infection [None]
  - Porphyria [None]
  - Headache [None]
  - Hyperhidrosis [None]
  - Procedural site reaction [None]
  - Abdominal pain upper [None]
  - Economic problem [None]
  - Nausea [None]
  - Drug ineffective [None]
  - Swelling [None]

NARRATIVE: CASE EVENT DATE: 20140617
